FAERS Safety Report 7280182-7 (Version None)
Quarter: 2011Q1

REPORT INFORMATION
  Report Type: 
  Country: None (occurrence: None)
  Receive Date: 20110208
  Receipt Date: 20110203
  Transmission Date: 20110831
  Serious: Yes (Death, Other)
  Sender: FDA-Public Use
  Company Number: ES-JNJFOC-20100210765

PATIENT
  Age: 45 Year
  Sex: Female

DRUGS (2)
  1. RIVOTRIL [Concomitant]
     Indication: ILL-DEFINED DISORDER
  2. INVEGA [Suspect]
     Indication: DEPRESSION
     Route: 048

REACTIONS (4)
  - MALAISE [None]
  - MUSCULOSKELETAL STIFFNESS [None]
  - DEMENTIA ALZHEIMER'S TYPE [None]
  - DIZZINESS [None]
